FAERS Safety Report 18097755 (Version 4)
Quarter: 2020Q4

REPORT INFORMATION
  Report Type: Spontaneous
  Country: US (occurrence: US)
  Receive Date: 20200731
  Receipt Date: 20201029
  Transmission Date: 20210113
  Serious: No
  Sender: FDA-Public Use
  Company Number: US-EISAI MEDICAL RESEARCH-EC-2020-077695

PATIENT
  Sex: Female

DRUGS (2)
  1. HALAVEN [Suspect]
     Active Substance: ERIBULIN MESYLATE
     Indication: PRODUCT USED FOR UNKNOWN INDICATION
     Dosage: DOSAGE UNKNOWN
     Route: 041
     Dates: start: 20200630, end: 20200630
  2. TUCATINIB [Suspect]
     Active Substance: TUCATINIB
     Indication: BREAST CANCER FEMALE
     Dosage: DOSAGE UNKNOWN

REACTIONS (13)
  - Hypertension [Unknown]
  - Dyspepsia [Unknown]
  - Constipation [Unknown]
  - Fatigue [Unknown]
  - Alopecia [Unknown]
  - Pruritus [Unknown]
  - Diarrhoea [Unknown]
  - Erythema [Unknown]
  - Urinary tract infection [Unknown]
  - Glossodynia [Unknown]
  - Cognitive disorder [Unknown]
  - Hepatic enzyme increased [Unknown]
  - Malaise [Unknown]
